FAERS Safety Report 20930173 (Version 18)
Quarter: 2023Q4

REPORT INFORMATION
  Report Type: Report from Study
  Country: US (occurrence: US)
  Receive Date: 20220608
  Receipt Date: 20231207
  Transmission Date: 20240110
  Serious: Yes (Other)
  Sender: FDA-Public Use
  Company Number: US-NOVARTISTESTPH-NVSC2022US131093

PATIENT
  Age: 43 Year
  Sex: Female

DRUGS (3)
  1. KESIMPTA [Suspect]
     Active Substance: OFATUMUMAB
     Indication: Relapsing multiple sclerosis
     Dosage: 20 MG, QMO
     Route: 058
     Dates: start: 20220523
  2. KESIMPTA [Suspect]
     Active Substance: OFATUMUMAB
     Indication: Multiple sclerosis
     Dosage: 20 MG (1 PEN)
     Route: 058
  3. DILTIAZEM HYDROCHLORIDE [Concomitant]
     Active Substance: DILTIAZEM HYDROCHLORIDE
     Indication: Product used for unknown indication
     Dosage: UNK
     Route: 065

REACTIONS (25)
  - Multiple sclerosis [Unknown]
  - Neuropathy peripheral [Unknown]
  - Headache [Unknown]
  - Muscle spasms [Unknown]
  - Dizziness [Unknown]
  - Visual impairment [Unknown]
  - Occipital neuralgia [Unknown]
  - Poor quality sleep [Unknown]
  - Hypoaesthesia [Unknown]
  - Brain fog [Not Recovered/Not Resolved]
  - Limb discomfort [Unknown]
  - Memory impairment [Unknown]
  - Malaise [Unknown]
  - Tachycardia [Unknown]
  - Pruritus [Unknown]
  - Aphasia [Unknown]
  - Central nervous system function test abnormal [Unknown]
  - Pain [Unknown]
  - Tongue blistering [Not Recovered/Not Resolved]
  - Migraine [Unknown]
  - Intervertebral disc protrusion [Unknown]
  - Flatulence [Unknown]
  - Nerve injury [Unknown]
  - Chest discomfort [Unknown]
  - Product dose omission issue [Unknown]

NARRATIVE: CASE EVENT DATE: 20220606
